FAERS Safety Report 16239547 (Version 6)
Quarter: 2019Q3

REPORT INFORMATION
  Report Type: Report from Study
  Country: US (occurrence: US)
  Receive Date: 20190425
  Receipt Date: 20190808
  Transmission Date: 20191004
  Serious: Yes (Hospitalization, Other)
  Sender: FDA-Public Use
  Company Number: PHEH2019US017329

PATIENT
  Age: 39 Year
  Sex: Female
  Weight: 98.41 kg

DRUGS (2)
  1. TREPROSTINIL. [Suspect]
     Active Substance: TREPROSTINIL
     Indication: PULMONARY ARTERIAL HYPERTENSION
     Dosage: UNK (29 NG/KG/MIN), CONTINOUS
     Route: 042
     Dates: start: 20190409
  2. OPSUMIT [Concomitant]
     Active Substance: MACITENTAN
     Indication: PRODUCT USED FOR UNKNOWN INDICATION
     Dosage: UNK
     Route: 065

REACTIONS (16)
  - Heart rate increased [Recovered/Resolved]
  - Somnolence [Unknown]
  - Unresponsive to stimuli [Unknown]
  - Fluid overload [Unknown]
  - Pain in jaw [Unknown]
  - Muscle spasms [Unknown]
  - Hypoxia [Unknown]
  - Fluid retention [Unknown]
  - Loss of consciousness [Unknown]
  - Dyspnoea [Unknown]
  - Pain in extremity [Unknown]
  - Swelling face [Unknown]
  - Swollen tongue [Unknown]
  - Foaming at mouth [Unknown]
  - Speech disorder [Unknown]
  - Weight increased [Unknown]

NARRATIVE: CASE EVENT DATE: 201907
